FAERS Safety Report 24953677 (Version 1)
Quarter: 2025Q1

REPORT INFORMATION
  Report Type: Spontaneous
  Country: RU (occurrence: RU)
  Receive Date: 20250211
  Receipt Date: 20250211
  Transmission Date: 20250408
  Serious: Yes (Other)
  Sender: AMGEN
  Company Number: RU-AMGEN-RUSSP2025024679

PATIENT
  Sex: Male

DRUGS (3)
  1. BLINATUMOMAB [Suspect]
     Active Substance: BLINATUMOMAB
     Indication: B precursor type acute leukaemia
     Dosage: 28 MILLIGRAM, QD
     Route: 065
  2. DASATINIB [Concomitant]
     Active Substance: DASATINIB
     Indication: B precursor type acute leukaemia
     Dosage: 70 MILLIGRAM, QD
     Dates: start: 2015
  3. PONATINIB [Concomitant]
     Active Substance: PONATINIB
     Indication: B precursor type acute leukaemia
     Dosage: 45 MILLIGRAM, QD

REACTIONS (5)
  - Ascites [Unknown]
  - B precursor type acute leukaemia [Recovered/Resolved]
  - Leukaemic infiltration extramedullary [Recovered/Resolved]
  - Leukaemic infiltration hepatic [Recovered/Resolved]
  - Cytokine release syndrome [Unknown]
